FAERS Safety Report 20190115 (Version 1)
Quarter: 2021Q4

REPORT INFORMATION
  Report Type: Spontaneous
  Country: US (occurrence: US)
  Receive Date: 20211215
  Receipt Date: 20211215
  Transmission Date: 20220303
  Serious: Yes (Other)
  Sender: FDA-Public Use
  Company Number: US-PFIZER INC-202101753010

PATIENT
  Age: 53 Year
  Sex: Female

DRUGS (1)
  1. XELJANZ [Suspect]
     Active Substance: TOFACITINIB CITRATE
     Dosage: 5 MG
     Dates: start: 20211208

REACTIONS (4)
  - Cataract [Unknown]
  - Haemophagocytic lymphohistiocytosis [Unknown]
  - Glucose tolerance impaired [Unknown]
  - Rheumatoid arthritis [Unknown]
